FAERS Safety Report 6114708-3 (Version None)
Quarter: 2009Q1

REPORT INFORMATION
  Report Type: 
  Country: None (occurrence: None)
  Receive Date: 20090311
  Receipt Date: 20080122
  Transmission Date: 20090719
  Serious: Yes (Other)
  Sender: FDA-Public Use
  Company Number: US200801004788

PATIENT
  Age: 43 Year
  Sex: Female
  Weight: 149.7 kg

DRUGS (4)
  1. GEMZAR [Suspect]
     Indication: OVARIAN CANCER METASTATIC
     Dosage: 2 G, OTHER
     Dates: start: 20071227
  2. LASIX [Concomitant]
  3. SPIRONOLACTONE [Concomitant]
  4. ZAROXOLYN [Concomitant]

REACTIONS (3)
  - HEPATIC STEATOSIS [None]
  - MALAISE [None]
  - TRANSAMINASES INCREASED [None]
